FAERS Safety Report 7904356-4 (Version None)
Quarter: 2011Q4

REPORT INFORMATION
  Report Type: 
  Country: None (occurrence: None)
  Receive Date: 20111109
  Receipt Date: 20111101
  Transmission Date: 20120403
  Serious: Yes (Hospitalization)
  Sender: FDA-Public Use
  Company Number: IN-PFIZER INC-2011255668

PATIENT
  Age: 43 Year
  Sex: Female
  Weight: 62 kg

DRUGS (7)
  1. ONDANSETRON [Concomitant]
     Indication: PROPHYLAXIS OF NAUSEA AND VOMITING
     Dosage: UNK
     Dates: start: 20110908, end: 20110909
  2. FLUOROURACIL [Suspect]
     Indication: COLORECTAL CANCER METASTATIC
     Dosage: 400 MG/M2, CYCLIC (ON DAY ONE EVERY 14 DAYS)
     Route: 040
     Dates: start: 20110906, end: 20110908
  3. FLUOROURACIL [Suspect]
     Dosage: 2400 MG/M2, CYCLIC (ON DAY ONE AND TWO EVERY 14 DAYS)
     Route: 042
     Dates: start: 20110906, end: 20110908
  4. BLINDED THERAPY [Suspect]
     Indication: COLORECTAL CANCER METASTATIC
     Dosage: 8 MG/KG, CYCLIC (EVERY 14 DAYS)
     Route: 042
     Dates: start: 20110906, end: 20110906
  5. IRINOTECAN HCL [Suspect]
     Indication: COLORECTAL CANCER METASTATIC
     Dosage: 180 MG/M2, CYCLIC (DAY ONE EVERY 14 DAYS)
     Route: 042
     Dates: start: 20110906, end: 20110906
  6. LEUCOVORIN CALCIUM [Suspect]
     Indication: COLORECTAL CANCER METASTATIC
     Dosage: 400 MG/M2, CYCLIC (DAY ONE EVERY 14 DAYS)
     Route: 042
     Dates: start: 20110906, end: 20110906
  7. PANTOPRAZOLE [Concomitant]
     Indication: PROPHYLAXIS OF NAUSEA AND VOMITING
     Dosage: UNK
     Dates: start: 20110908, end: 20110909

REACTIONS (5)
  - EASTERN COOPERATIVE ONCOLOGY GROUP PERFORMANCE STATUS WORSENED [None]
  - INTESTINAL OBSTRUCTION [None]
  - STOMATITIS [None]
  - THROMBOCYTOPENIA [None]
  - FEBRILE NEUTROPENIA [None]
